FAERS Safety Report 6680295-4 (Version None)
Quarter: 2010Q2

REPORT INFORMATION
  Report Type: 
  Country: None (occurrence: None)
  Receive Date: 20100413
  Receipt Date: 20100326
  Transmission Date: 20101027
  Serious: Yes (Other)
  Sender: FDA-Public Use
  Company Number: US-GENENTECH-246527

PATIENT
  Sex: Female

DRUGS (14)
  1. OMALIZUMAB [Suspect]
     Indication: ASTHMA
     Dosage: 150 MG, Q4W
     Dates: start: 20060202
  2. PREDNISOLONE [Concomitant]
     Indication: GASTROENTERITIS EOSINOPHILIC
     Dosage: UNK
  3. LISINOPRIL [Concomitant]
     Indication: HYPERTENSION
  4. AMBIEN [Concomitant]
     Indication: INSOMNIA
     Dosage: UNK
  5. ZOLOFT [Concomitant]
     Indication: ANXIETY
     Dosage: UNK
  6. ZOLOFT [Concomitant]
     Indication: DEPRESSION
  7. ADVAIR DISKUS 100/50 [Concomitant]
     Indication: ASTHMA
  8. RHINOCORT [Concomitant]
     Indication: HYPERSENSITIVITY
     Dosage: UNK
  9. PULMICORT [Concomitant]
     Indication: ASTHMA
     Dosage: UNK
  10. NASONEX [Concomitant]
     Indication: HYPERSENSITIVITY
  11. VITAMIN TAB [Concomitant]
     Indication: PREGNANCY
     Dosage: UNK
  12. AMPICILLIN [Concomitant]
     Indication: PROPHYLAXIS
  13. ZITHROMAX [Concomitant]
     Indication: PROPHYLAXIS
  14. CELESTONE [Concomitant]
     Indication: PREMATURE RUPTURE OF MEMBRANES

REACTIONS (1)
  - CHOLECYSTITIS [None]
